FAERS Safety Report 25404437 (Version 4)
Quarter: 2025Q3

REPORT INFORMATION
  Report Type: Report from Study
  Country: EU (occurrence: EU)
  Receive Date: 20250606
  Receipt Date: 20250829
  Transmission Date: 20251020
  Serious: Yes (Hospitalization, Other)
  Sender: EMD SERONO INC
  Company Number: EU-Merck Healthcare KGaA-2025028001

PATIENT
  Age: 39 Year
  Sex: Female
  Weight: 50 kg

DRUGS (2)
  1. REBIF [Suspect]
     Active Substance: INTERFERON BETA-1A
     Indication: Multiple sclerosis
     Dates: start: 20120313, end: 20250515
  2. REBIF [Suspect]
     Active Substance: INTERFERON BETA-1A

REACTIONS (9)
  - Glucose urine present [Unknown]
  - Nephrotic syndrome [Not Recovered/Not Resolved]
  - Malignant hypertension [Not Recovered/Not Resolved]
  - Haematuria [Unknown]
  - Thrombotic microangiopathy [Recovering/Resolving]
  - Iron deficiency [Unknown]
  - Vitamin D deficiency [Unknown]
  - Blood thyroid stimulating hormone increased [Unknown]
  - Thyroxine free decreased [Unknown]

NARRATIVE: CASE EVENT DATE: 20250513
